FAERS Safety Report 16155577 (Version 1)
Quarter: 2019Q2

REPORT INFORMATION
  Report Type: Report from Study
  Country: DE (occurrence: DE)
  Receive Date: 20190404
  Receipt Date: 20190404
  Transmission Date: 20190711
  Serious: Yes (Other)
  Sender: FDA-Public Use
  Company Number: DE-AMGEN-DEUNI2018057872

PATIENT
  Age: 69 Year
  Sex: Male
  Weight: 171 kg

DRUGS (7)
  1. EZETROL [Concomitant]
     Active Substance: EZETIMIBE
     Indication: HYPERCHOLESTEROLAEMIA
     Dosage: 10 MG, QD
     Route: 048
     Dates: start: 2016
  2. EVOLOCUMAB [Suspect]
     Active Substance: EVOLOCUMAB
     Indication: TYPE IIA HYPERLIPIDAEMIA
     Dosage: 140 MG, Q2WK
     Route: 065
     Dates: start: 20180223
  3. NEBIVOLOL. [Concomitant]
     Active Substance: NEBIVOLOL
     Indication: CORONARY ARTERY DISEASE
     Dosage: 2.5 MG, QD
     Route: 048
     Dates: start: 2016
  4. ASPIRIN. [Concomitant]
     Active Substance: ASPIRIN
     Indication: CORONARY ARTERY DISEASE
     Dosage: 100 MILLIGRAM, QD
     Route: 048
     Dates: start: 2008
  5. ATORVASTATIN [Concomitant]
     Active Substance: ATORVASTATIN
     Indication: LIPID METABOLISM DISORDER
  6. EZETROL [Concomitant]
     Active Substance: EZETIMIBE
     Indication: LIPID METABOLISM DISORDER
  7. ATORVASTATIN [Concomitant]
     Active Substance: ATORVASTATIN
     Indication: HYPERCHOLESTEROLAEMIA
     Dosage: 80 MG, QD
     Route: 048
     Dates: start: 2014

REACTIONS (6)
  - Balance disorder [Recovering/Resolving]
  - Confusional state [Recovering/Resolving]
  - Erythema [Recovering/Resolving]
  - Rhinorrhoea [Recovering/Resolving]
  - Gingival bleeding [Recovering/Resolving]
  - Flatulence [Recovering/Resolving]

NARRATIVE: CASE EVENT DATE: 20180226
